FAERS Safety Report 25744854 (Version 1)
Quarter: 2025Q3

REPORT INFORMATION
  Report Type: Report from Study
  Country: US (occurrence: US)
  Receive Date: 20250901
  Receipt Date: 20250901
  Transmission Date: 20251020
  Serious: Yes (Hospitalization)
  Sender: SANDOZ
  Company Number: US-BEIGENE-BGN-2023-007746

PATIENT
  Age: 66 Year
  Sex: Female
  Weight: 88 kg

DRUGS (22)
  1. CARBOPLATIN [Suspect]
     Active Substance: CARBOPLATIN
     Indication: Non-small cell lung cancer metastatic
     Route: 042
     Dates: start: 20230131
  2. CARBOPLATIN [Suspect]
     Active Substance: CARBOPLATIN
     Route: 042
     Dates: start: 20230404, end: 20230404
  3. PEMETREXED [Suspect]
     Active Substance: PEMETREXED
     Indication: Non-small cell lung cancer metastatic
     Route: 042
     Dates: start: 20230131
  4. PEMETREXED [Suspect]
     Active Substance: PEMETREXED
     Route: 042
     Dates: start: 20230718, end: 20230718
  5. TISLELIZUMAB [Suspect]
     Active Substance: TISLELIZUMAB
     Indication: Non-small cell lung cancer metastatic
     Route: 042
     Dates: start: 20230131
  6. TISLELIZUMAB [Suspect]
     Active Substance: TISLELIZUMAB
     Route: 042
     Dates: start: 20230718
  7. ACETAMINOPHEN [Concomitant]
     Active Substance: ACETAMINOPHEN
     Indication: Pleuritic pain
     Route: 065
     Dates: start: 202212
  8. ACETAMINOPHEN [Concomitant]
     Active Substance: ACETAMINOPHEN
     Indication: Headache
  9. APIXABAN [Concomitant]
     Active Substance: APIXABAN
     Indication: Pulmonary embolism
     Route: 065
     Dates: start: 20221223
  10. CIPROFLOXACIN [Concomitant]
     Active Substance: CIPROFLOXACIN
     Indication: Urinary tract infection
     Route: 065
     Dates: start: 20230315
  11. DEXAMETHASONE [Concomitant]
     Active Substance: DEXAMETHASONE
     Indication: Nausea
     Route: 065
     Dates: start: 20230130, end: 20230808
  12. DEXAMETHASONE [Concomitant]
     Active Substance: DEXAMETHASONE
     Route: 065
     Dates: start: 20230131, end: 20230808
  13. Dulcolax [Concomitant]
     Indication: Constipation
     Route: 065
     Dates: start: 20230310
  14. FOLIC ACID [Concomitant]
     Active Substance: FOLIC ACID
     Indication: Adverse drug reaction
     Route: 065
     Dates: start: 20230117
  15. LISINOPRIL [Concomitant]
     Active Substance: LISINOPRIL
     Indication: Hypertension
     Route: 065
     Dates: start: 20230131
  16. MIRALAX [Concomitant]
     Active Substance: POLYETHYLENE GLYCOL 3350
     Indication: Constipation
     Route: 065
     Dates: start: 20230129
  17. OLANZAPINE [Concomitant]
     Active Substance: OLANZAPINE
     Indication: Nausea
     Route: 065
     Dates: start: 20230131
  18. OXYCODONE [Concomitant]
     Active Substance: OXYCODONE
     Indication: Pleuritic pain
     Route: 065
     Dates: start: 20221223
  19. PALONOSETRON [Concomitant]
     Active Substance: PALONOSETRON
     Indication: Nausea
     Route: 065
     Dates: start: 20230131, end: 20230808
  20. SENNA [Concomitant]
     Active Substance: SENNOSIDES
     Indication: Constipation
     Route: 065
     Dates: start: 20230202
  21. UREA [Concomitant]
     Active Substance: UREA
     Indication: Product used for unknown indication
     Route: 065
  22. VITAMIN B12 [Concomitant]
     Active Substance: CYANOCOBALAMIN
     Indication: Adverse drug reaction
     Route: 065
     Dates: start: 20230124

REACTIONS (1)
  - Febrile neutropenia [Recovered/Resolved]

NARRATIVE: CASE EVENT DATE: 20230726
